FAERS Safety Report 5151999-X (Version None)
Quarter: 2006Q4

REPORT INFORMATION
  Report Type: 
  Country: None (occurrence: None)
  Receive Date: 20061116
  Receipt Date: 20061109
  Transmission Date: 20070319
  Serious: Yes (Life-Threatening, Hospitalization)
  Sender: FDA-Public Use
  Company Number: BE-ELI_LILLY_AND_COMPANY-BE200611001857

PATIENT
  Sex: Male

DRUGS (5)
  1. ZYPREXA [Suspect]
     Indication: AGITATION
     Dosage: 10 MG,
     Route: 048
  2. ZYPREXA [Suspect]
     Dosage: 10 MG, UNK
     Route: 048
  3. DEHYDROBENZPERIDOL [Concomitant]
     Indication: AGITATION
  4. VALIUM                                  /NET/ [Concomitant]
     Indication: AGITATION
  5. TEMESTA /NET/ [Concomitant]
     Indication: AGITATION
     Dosage: 2.5 MG, UNK

REACTIONS (1)
  - ANGIONEUROTIC OEDEMA [None]
